FAERS Safety Report 10034928 (Version 2)
Quarter: 2014Q2

REPORT INFORMATION
  Report Type: Spontaneous
  Country: JP (occurrence: JP)
  Receive Date: 20140325
  Receipt Date: 20140414
  Transmission Date: 20141212
  Serious: No
  Sender: FDA-Public Use
  Company Number: JP-SA-2014SA034020

PATIENT
  Age: 88 Year
  Sex: Male

DRUGS (1)
  1. DELLEGRA [Suspect]
     Indication: RHINITIS ALLERGIC
     Route: 048
     Dates: start: 20140307, end: 20140312

REACTIONS (2)
  - Palpitations [Recovered/Resolved]
  - Blood pressure increased [Recovered/Resolved]
